FAERS Safety Report 8380602-0 (Version None)
Quarter: 2012Q1

REPORT INFORMATION
  Report Type: 
  Country: None (occurrence: None)
  Receive Date: 20120323
  Receipt Date: 20110404
  Transmission Date: 20120608
  Serious: Yes (Other)
  Sender: FDA-Public Use
  Company Number: 163-21880-11040580

PATIENT
  Age: 76 Year
  Sex: Male

DRUGS (1)
  1. REVLIMID [Suspect]
     Indication: MYELODYSPLASTIC SYNDROME
     Dosage: 10 MG, DAYS 1-21, PO
     Route: 048
     Dates: start: 20110130

REACTIONS (3)
  - ANAEMIA [None]
  - URINARY TRACT INFECTION [None]
  - OEDEMA PERIPHERAL [None]
